FAERS Safety Report 7285261-6 (Version None)
Quarter: 2011Q1

REPORT INFORMATION
  Report Type: 
  Country: None (occurrence: None)
  Receive Date: 20110210
  Receipt Date: 20110202
  Transmission Date: 20110831
  Serious: Yes (Death)
  Sender: FDA-Public Use
  Company Number: FR-JNJFOC-20101107746

PATIENT
  Sex: Male
  Weight: 74 kg

DRUGS (4)
  1. NORVIR [Suspect]
     Route: 048
  2. TRUVADA [Suspect]
     Indication: HIV INFECTION
     Route: 048
     Dates: start: 20070419
  3. NORVIR [Suspect]
     Indication: HIV INFECTION
     Route: 048
  4. PREZISTA [Suspect]
     Indication: HIV INFECTION
     Route: 048
     Dates: start: 20100921

REACTIONS (1)
  - MYOCARDIAL INFARCTION [None]
